FAERS Safety Report 11326151 (Version 2)
Quarter: 2015Q3

REPORT INFORMATION
  Report Type: Spontaneous
  Country: JP (occurrence: JP)
  Receive Date: 20150731
  Receipt Date: 20150811
  Transmission Date: 20151125
  Serious: Yes (Other)
  Sender: FDA-Public Use
  Company Number: PHJP2015JP012894

PATIENT
  Age: 85 Year
  Sex: Male

DRUGS (2)
  1. ZOLEDRONATE [Suspect]
     Active Substance: ZOLEDRONIC ACID
     Indication: PROSTATE CANCER
     Dosage: 4 MG, TOTAL OF 5 TIMES SO FAR
     Route: 041
  2. PREDNISOLONE. [Concomitant]
     Active Substance: PREDNISOLONE
     Indication: PROSTATE CANCER
     Dosage: 1 MG, QD
     Route: 065

REACTIONS (8)
  - Swelling [Unknown]
  - Trismus [Unknown]
  - Arthritis infective [Unknown]
  - Abscess [Unknown]
  - Hypoaesthesia [Unknown]
  - Osteonecrosis of jaw [Unknown]
  - Impaired healing [Unknown]
  - Bone deformity [Unknown]
